FAERS Safety Report 5336630-2 (Version None)
Quarter: 2007Q2

REPORT INFORMATION
  Report Type: 
  Country: None (occurrence: None)
  Receive Date: 20070524
  Receipt Date: 20070517
  Transmission Date: 20071010
  Serious: Yes (Death)
  Sender: FDA-Public Use
  Company Number: 2007SP009652

PATIENT
  Age: 68 Year
  Sex: Female

DRUGS (1)
  1. TEMODAR [Suspect]
     Indication: NON-HODGKIN'S LYMPHOMA
     Dosage: 200 MG; QD

REACTIONS (1)
  - DEATH [None]
